FAERS Safety Report 21927713 (Version 4)
Quarter: 2024Q1

REPORT INFORMATION
  Report Type: Spontaneous
  Country: US (occurrence: US)
  Receive Date: 20230130
  Receipt Date: 20240201
  Transmission Date: 20240410
  Serious: Yes (Other)
  Sender: FDA-Public Use
  Company Number: US-PFIZER INC-PV202300015961

PATIENT
  Age: 76 Year
  Sex: Male
  Weight: 49.887 kg

DRUGS (9)
  1. MORPHINE SULFATE [Suspect]
     Active Substance: MORPHINE SULFATE
     Indication: Pain
     Dosage: 60 MG, 2X/DAY
  2. MORPHINE SULFATE [Suspect]
     Active Substance: MORPHINE SULFATE
     Dosage: 60 MG X 4
  3. BRAFTOVI [Concomitant]
     Active Substance: ENCORAFENIB
     Indication: Neoplasm malignant
     Dosage: 150 MG, 2X/DAY
     Dates: start: 20230123
  4. METOPROLOL [Concomitant]
     Active Substance: METOPROLOL
     Indication: Cardiac disorder
     Dosage: 1 DF, DAILY
     Dates: start: 2021
  5. HYDROCHLOROTHIAZIDE [Concomitant]
     Active Substance: HYDROCHLOROTHIAZIDE
     Indication: Diuretic therapy
     Dosage: 25 MG, DAILY
     Dates: start: 2021
  6. LISINOPRIL [Concomitant]
     Active Substance: LISINOPRIL
     Indication: Diuretic therapy
     Dosage: 25 MG, DAILY
     Dates: start: 2021
  7. CLOPIDOGREL [Concomitant]
     Active Substance: CLOPIDOGREL BISULFATE
     Indication: Blood pressure abnormal
     Dosage: 75 MG, DAILY
     Dates: start: 2022
  8. HYDROMORPHONE [Concomitant]
     Active Substance: HYDROMORPHONE
     Indication: Pain
     Dosage: 4 MG, AS NEEDED
  9. HYDROMORPHONE [Concomitant]
     Active Substance: HYDROMORPHONE
     Dosage: 24 MG
     Dates: start: 202201

REACTIONS (6)
  - Exostosis of jaw [Not Recovered/Not Resolved]
  - Blindness unilateral [Not Recovered/Not Resolved]
  - Rash pruritic [Recovered/Resolved]
  - Dry skin [Not Recovered/Not Resolved]
  - Pain [Not Recovered/Not Resolved]
  - Psychomotor skills impaired [Not Recovered/Not Resolved]
